FAERS Safety Report 21116964 (Version 2)
Quarter: 2022Q3

REPORT INFORMATION
  Report Type: Spontaneous
  Country: FR (occurrence: FR)
  Receive Date: 20220722
  Receipt Date: 20220818
  Transmission Date: 20221026
  Serious: Yes (Death)
  Sender: FDA-Public Use
  Company Number: None

PATIENT
  Age: 64 Year
  Sex: Female
  Weight: 49 kg

DRUGS (4)
  1. METFORMIN HYDROCHLORIDE [Suspect]
     Active Substance: METFORMIN HYDROCHLORIDE
     Indication: Type 2 diabetes mellitus
     Dosage: 3 DOSAGE FORMS DAILY; 1 TABLET 3 TIMES A DAY, STRENGTH 850MG,DURATION 3DAYS,FREQUENCY TIME 1DAYS
     Route: 065
     Dates: start: 20220522, end: 20220525
  2. ULTRAVIST [Suspect]
     Active Substance: IOPROMIDE
     Indication: Computerised tomogram abdomen
     Dosage: 370 (370 MG IODINE/ML), UNIT DOSE : 80 ML , FREQUENCY TIME : 1 TOTAL , DURATION : 1 DAY
     Dates: start: 20220522, end: 20220522
  3. ESIDREX [Concomitant]
     Active Substance: HYDROCHLOROTHIAZIDE
     Indication: Hypertension
     Dosage: FORM STRENGTH : 25 MG , UNIT DOSE : 1 DF , FREQUENCY TIME : 1 DAY
     Dates: end: 20220525
  4. RAMIPRIL [Concomitant]
     Active Substance: RAMIPRIL
     Indication: Hypertension
     Dosage: UNIT DOSE : 10 MG , FREQUENCY TIME : 1 DAY
     Dates: end: 20220525

REACTIONS (4)
  - Lactic acidosis [Fatal]
  - Overdose [Fatal]
  - Product prescribing error [Recovered/Resolved]
  - Off label use [Recovered/Resolved]

NARRATIVE: CASE EVENT DATE: 20220522
